FAERS Safety Report 6618666-4 (Version None)
Quarter: 2010Q1

REPORT INFORMATION
  Report Type: 
  Country: None (occurrence: None)
  Receive Date: 20100305
  Receipt Date: 20100305
  Transmission Date: 20100710
  Serious: No
  Sender: FDA-Public Use
  Company Number: None

PATIENT
  Age: 69 Year
  Sex: Male
  Weight: 69.4003 kg

DRUGS (1)
  1. MULTAQ [Suspect]
     Dosage: 1   2 A DAY

REACTIONS (3)
  - RASH [None]
  - SWELLING FACE [None]
  - WEIGHT INCREASED [None]
